FAERS Safety Report 25814070 (Version 3)
Quarter: 2025Q3

REPORT INFORMATION
  Report Type: Other
  Country: US (occurrence: US)
  Receive Date: 20250917
  Receipt Date: 20250917
  Transmission Date: 20251021
  Serious: No
  Sender: TRAVERE THERAPEUTICS
  Company Number: US-TRAVERE-2025TVT01121

PATIENT
  Age: 41 Year
  Sex: Male

DRUGS (3)
  1. FILSPARI [Suspect]
     Active Substance: SPARSENTAN
     Indication: IgA nephropathy
     Route: 048
     Dates: start: 202505
  2. FILSPARI [Suspect]
     Active Substance: SPARSENTAN
     Dosage: 200 MG, 2 TABLETS, ONCE A DAY
     Route: 048
     Dates: start: 20250616
  3. TARPEYO [Concomitant]
     Active Substance: BUDESONIDE

REACTIONS (6)
  - Dizziness [Unknown]
  - Dyspnoea exertional [None]
  - Abdominal pain upper [Unknown]
  - Nausea [Recovered/Resolved]
  - Tremor [Recovered/Resolved]
  - Malaise [Unknown]
